FAERS Safety Report 10130843 (Version 1)
Quarter: 2014Q2

REPORT INFORMATION
  Report Type: Spontaneous
  Country: US (occurrence: US)
  Receive Date: 20140428
  Receipt Date: 20140428
  Transmission Date: 20141212
  Serious: No
  Sender: FDA-Public Use
  Company Number: US-BAYER-2014-061649

PATIENT
  Sex: Male

DRUGS (3)
  1. ALEVE LIQUID GELS [Suspect]
     Indication: ARTHRALGIA
     Dosage: 1 DF, PRN
     Route: 048
  2. CODEINE [Concomitant]
  3. TYLENOL WITH CODEINE [Concomitant]

REACTIONS (1)
  - Drug ineffective [None]
